FAERS Safety Report 20926340 (Version 1)
Quarter: 2022Q2

REPORT INFORMATION
  Report Type: Spontaneous
  Country: US (occurrence: US)
  Receive Date: 20220607
  Receipt Date: 20220607
  Transmission Date: 20220721
  Serious: Yes (Hospitalization)
  Sender: FDA-Public Use
  Company Number: US-BRISTOL-MYERS SQUIBB COMPANY-2022-053441

PATIENT
  Age: 72 Year
  Sex: Female

DRUGS (1)
  1. REVLIMID [Suspect]
     Active Substance: LENALIDOMIDE
     Indication: Plasma cell myeloma
     Dosage: 1-21 OF EACH CYCLE, THEN 7 DAYS OFF SWALLOW CAPSULE WHOLE, DO NOT BREAK, OPEN, OR CHEW
     Route: 048
     Dates: start: 20211204

REACTIONS (1)
  - Hospitalisation [Unknown]
